FAERS Safety Report 8588038-4 (Version None)
Quarter: 2012Q3

REPORT INFORMATION
  Report Type: 
  Country: None (occurrence: None)
  Receive Date: 20120731
  Receipt Date: 20120719
  Transmission Date: 20120928
  Serious: Yes (Other)
  Sender: FDA-Public Use
  Company Number: ALK_02647_2012

PATIENT
  Sex: Male

DRUGS (1)
  1. VIVITROL [Suspect]
     Indication: DRUG DEPENDENCE
     Dosage: (380 MG 1X/MONTH INTRAMUSCULAR)
     Route: 030

REACTIONS (1)
  - IMPLANT SITE ABSCESS [None]
